FAERS Safety Report 4699922-6 (Version None)
Quarter: 2005Q2

REPORT INFORMATION
  Report Type: 
  Country: None (occurrence: None)
  Receive Date: 20050624
  Receipt Date: 20050314
  Transmission Date: 20051028
  Serious: Yes (Hospitalization)
  Sender: FDA-Public Use
  Company Number: US-MERCK-0503USA03899

PATIENT
  Age: 52 Year
  Sex: Female
  Weight: 109 kg

DRUGS (6)
  1. VIOXX [Suspect]
     Indication: ARTHRITIS
     Route: 048
     Dates: start: 20010501, end: 20040901
  2. DILANTIN [Concomitant]
     Route: 065
  3. LORAZEPAM [Concomitant]
     Route: 065
  4. EFFEXOR [Concomitant]
     Route: 065
  5. LORTAB [Concomitant]
     Route: 065
  6. DIOVAN [Concomitant]
     Route: 065
     Dates: start: 20010101

REACTIONS (1)
  - MYOCARDIAL INFARCTION [None]
